FAERS Safety Report 5394381-2 (Version None)
Quarter: 2007Q3

REPORT INFORMATION
  Report Type: 
  Country: None (occurrence: None)
  Receive Date: 20070723
  Receipt Date: 20070716
  Transmission Date: 20080115
  Serious: Yes (Hospitalization)
  Sender: FDA-Public Use
  Company Number: US-ABBOTT-07P-163-0363352-00

PATIENT
  Sex: Male
  Weight: 70.824 kg

DRUGS (7)
  1. DEPAKOTE [Suspect]
     Indication: CONVULSION
     Route: 048
     Dates: start: 20000101
  2. TOPIRAMATE [Concomitant]
     Indication: CONVULSION
     Route: 048
  3. PRIMIDONE [Concomitant]
     Indication: CONVULSION
     Route: 048
  4. METOPROLOL SUCCINATE [Concomitant]
     Indication: BICUSPID AORTIC VALVE
     Route: 048
  5. SINGULAIR [Concomitant]
     Indication: ASTHMA
     Route: 048
  6. FLOVENT IH [Concomitant]
     Indication: ASTHMA
     Route: 055
  7. ALBUTEROL IH [Concomitant]
     Indication: ASTHMA
     Route: 055

REACTIONS (7)
  - AMMONIA INCREASED [None]
  - DEHYDRATION [None]
  - DIARRHOEA [None]
  - GASTROENTERITIS [None]
  - INFLUENZA LIKE ILLNESS [None]
  - PNEUMONIA [None]
  - VOMITING [None]
